FAERS Safety Report 9949421 (Version 1)
Quarter: 2014Q1

REPORT INFORMATION
  Report Type: Report from Study
  Country: MX (occurrence: MX)
  Receive Date: 20140304
  Receipt Date: 20140304
  Transmission Date: 20141002
  Serious: Yes (Hospitalization, Disabling)
  Sender: FDA-Public Use
  Company Number: MX-ROCHE-1356771

PATIENT
  Age: 47 Year
  Sex: Female
  Weight: 71.6 kg

DRUGS (6)
  1. ACTEMRA [Suspect]
     Indication: RHEUMATOID ARTHRITIS
     Route: 042
     Dates: start: 201110
  2. PLAQUENIL [Concomitant]
     Indication: RHEUMATOID ARTHRITIS
     Route: 048
     Dates: start: 201303
  3. RANTUDIL RETARD [Concomitant]
     Indication: RHEUMATOID ARTHRITIS
     Route: 048
     Dates: start: 201110
  4. MICARDIS PLUS [Concomitant]
     Indication: HYPERTENSION
     Route: 048
     Dates: start: 200506
  5. EVIPRESS [Concomitant]
     Indication: HYPERTENSION
     Route: 048
     Dates: start: 200506
  6. SELOKEN ZOC [Concomitant]
     Indication: HYPERTENSION
     Route: 048
     Dates: start: 200506

REACTIONS (3)
  - Cyst [Recovering/Resolving]
  - Bone pain [Recovered/Resolved]
  - Immune system disorder [Unknown]
